FAERS Safety Report 16478658 (Version 3)
Quarter: 2019Q3

REPORT INFORMATION
  Report Type: Spontaneous
  Country: US (occurrence: US)
  Receive Date: 20190626
  Receipt Date: 20190702
  Transmission Date: 20191004
  Serious: Yes (Other)
  Sender: FDA-Public Use
  Company Number: US-PFIZER INC-2019273974

PATIENT
  Age: 62 Year
  Sex: Female

DRUGS (1)
  1. XANAX [Suspect]
     Active Substance: ALPRAZOLAM
     Dosage: 2 MG, UNK

REACTIONS (4)
  - Drug ineffective [Unknown]
  - Anxiety [Unknown]
  - Swollen tongue [Unknown]
  - Blood pressure increased [Unknown]
